FAERS Safety Report 8824643 (Version 2)
Quarter: 2012Q4

REPORT INFORMATION
  Report Type: 
  Country: US (occurrence: US)
  Receive Date: 20121004
  Receipt Date: 20121022
  Transmission Date: 20130627
  Serious: No
  Sender: FDA-Public Use
  Company Number: PHEH2012US019138

PATIENT
  Sex: Male
  Weight: 93.89 kg

DRUGS (6)
  1. DIOVAN [Suspect]
     Route: 048
  2. LISINOPRIL TABLETS [Suspect]
     Indication: BLOOD PRESSURE
     Route: 048
     Dates: start: 201203
  3. METFORMIN [Concomitant]
     Indication: DIABETES MELLITUS
  4. AMLODIPINE [Concomitant]
  5. CIALIS ^GLAXOSMITHKLINE^ [Concomitant]
  6. MULTIVITAMINS, OTHER COMBINATIONS [Concomitant]

REACTIONS (1)
  - Malaise [Unknown]
